FAERS Safety Report 6662057-7 (Version None)
Quarter: 2010Q1

REPORT INFORMATION
  Report Type: 
  Country: None (occurrence: None)
  Receive Date: 20100331
  Receipt Date: 20100319
  Transmission Date: 20100710
  Serious: Yes (Other)
  Sender: FDA-Public Use
  Company Number: US-PFIZER INC-2010036670

PATIENT
  Sex: Female
  Weight: 86 kg

DRUGS (10)
  1. CHANTIX [Suspect]
     Indication: SMOKING CESSATION THERAPY
     Dosage: 0.5 MG, 1X/DAY
     Route: 048
     Dates: start: 20100310
  2. CHANTIX [Suspect]
     Dosage: 1 MG, 2X/DAY
     Dates: start: 20100301
  3. LEXAPRO [Concomitant]
     Dosage: UNK
  4. PRINZIDE [Concomitant]
     Indication: HYPERTENSION
     Dosage: UNK
  5. CELEBREX [Concomitant]
     Dosage: UNK
  6. PREMARIN [Concomitant]
     Dosage: 0.625MG
  7. NEXIUM [Concomitant]
     Dosage: UNK
  8. MONTELUKAST [Concomitant]
     Dosage: UNK
  9. SIMVASTATIN [Concomitant]
     Indication: BLOOD CHOLESTEROL INCREASED
     Dosage: UNK
  10. XANAX [Concomitant]
     Dosage: UNK

REACTIONS (2)
  - PRURITUS [None]
  - RASH ERYTHEMATOUS [None]
